APPROVED DRUG PRODUCT: NORETHINDRONE ACETATE AND ETHINYL ESTRADIOL AND FERROUS FUMARATE
Active Ingredient: ETHINYL ESTRADIOL; NORETHINDRONE ACETATE
Strength: 0.02MG;1MG
Dosage Form/Route: TABLET;ORAL
Application: A209609 | Product #001 | TE Code: AB
Applicant: XIROMED PHARMA ESPANA SL
Approved: Jul 16, 2018 | RLD: No | RS: No | Type: RX